FAERS Safety Report 21682325 (Version 2)
Quarter: 2023Q1

REPORT INFORMATION
  Report Type: Other
  Country: AU (occurrence: None)
  Receive Date: 20221205
  Receipt Date: 20230322
  Transmission Date: 20230417
  Serious: Yes (Other)
  Sender: FDA-Public Use
  Company Number: AU-ROCHE-3229732

PATIENT
  Age: 45 Year
  Sex: Female

DRUGS (1)
  1. OCREVUS [Suspect]
     Active Substance: OCRELIZUMAB
     Indication: Multiple sclerosis
     Dosage: RECEIVED THE SUSPECT PRIOR TO START DATE: 3 YEARS AGO.
     Route: 042
     Dates: start: 20221005, end: 20221005

REACTIONS (4)
  - Heavy menstrual bleeding [Recovering/Resolving]
  - Multiple sclerosis [Recovering/Resolving]
  - Wheezing [Recovered/Resolved]
  - Cough [Recovered/Resolved]

NARRATIVE: CASE EVENT DATE: 20221005
